FAERS Safety Report 6309263-9 (Version None)
Quarter: 2009Q3

REPORT INFORMATION
  Report Type: 
  Country: None (occurrence: None)
  Receive Date: 20090814
  Receipt Date: 20090803
  Transmission Date: 20100115
  Serious: Yes (Other)
  Sender: FDA-Public Use
  Company Number: BR-PFIZER INC-2009250627

PATIENT

DRUGS (1)
  1. XALATAN [Suspect]

REACTIONS (1)
  - ASTHMATIC CRISIS [None]
